FAERS Safety Report 14940960 (Version 1)
Quarter: 2018Q2

REPORT INFORMATION
  Report Type: Other
  Country: CN (occurrence: CN)
  Receive Date: 20180525
  Receipt Date: 20180525
  Transmission Date: 20180711
  Serious: Yes (Life-Threatening)
  Sender: FDA-Public Use
  Company Number: CN-GEHC-2018CSU001993

PATIENT

DRUGS (2)
  1. OMNIPAQUE [Suspect]
     Active Substance: IOHEXOL
     Indication: BRONCHIECTASIS
     Dosage: 100 ML, SINGLE
     Route: 042
     Dates: start: 20180115, end: 20180115
  2. OMNIPAQUE [Suspect]
     Active Substance: IOHEXOL
     Indication: SKIN TEST
     Dosage: 1 ML, SINGLE
     Route: 023
     Dates: start: 20180115, end: 20180115

REACTIONS (2)
  - Off label use [Recovered/Resolved]
  - Anaphylactic reaction [Recovered/Resolved]

NARRATIVE: CASE EVENT DATE: 20180115
